FAERS Safety Report 15077222 (Version 3)
Quarter: 2018Q3

REPORT INFORMATION
  Report Type: Report from Study
  Country: US (occurrence: US)
  Receive Date: 20180627
  Receipt Date: 20180828
  Transmission Date: 20181010
  Serious: Yes (Death, Hospitalization)
  Sender: FDA-Public Use
  Company Number: US-ACTELION-A-US2017-161979

PATIENT
  Age: 73 Year
  Sex: Female
  Weight: 52.15 kg

DRUGS (5)
  1. DILTIAZEM. [Concomitant]
     Active Substance: DILTIAZEM
  2. COUMADIN [Concomitant]
     Active Substance: WARFARIN SODIUM
  3. ADCIRCA [Concomitant]
     Active Substance: TADALAFIL
  4. TYVASO [Concomitant]
     Active Substance: TREPROSTINIL
  5. OPSUMIT [Suspect]
     Active Substance: MACITENTAN
     Indication: PULMONARY HYPERTENSION
     Dosage: 10 MG, QD
     Route: 048
     Dates: start: 20160112, end: 20180805

REACTIONS (14)
  - Oedema peripheral [Recovered/Resolved with Sequelae]
  - Turner^s syndrome [Recovered/Resolved with Sequelae]
  - Cardiac failure [Fatal]
  - Pulmonary hypertension [Fatal]
  - Respiratory failure [Fatal]
  - Cardiogenic shock [Fatal]
  - Renal failure [Recovered/Resolved with Sequelae]
  - Atrial fibrillation [Fatal]
  - Gastrointestinal haemorrhage [Recovered/Resolved with Sequelae]
  - Anaemia [Recovered/Resolved with Sequelae]
  - Nasopharyngitis [Unknown]
  - Pneumonia [Fatal]
  - Acute kidney injury [Fatal]
  - Atrial septal defect [Recovered/Resolved with Sequelae]

NARRATIVE: CASE EVENT DATE: 20180503
